FAERS Safety Report 8119215-4 (Version None)
Quarter: 2012Q1

REPORT INFORMATION
  Report Type: 
  Country: None (occurrence: None)
  Receive Date: 20120207
  Receipt Date: 20111123
  Transmission Date: 20120608
  Serious: Yes (Hospitalization)
  Sender: FDA-Public Use
  Company Number: DE-ROCHE-1009331

PATIENT
  Age: 54 Year
  Sex: Female

DRUGS (7)
  1. ACTEMRA [Suspect]
     Indication: RHEUMATOID ARTHRITIS
     Dates: start: 20100201, end: 20100721
  2. PREDNISOLONE [Concomitant]
     Indication: RHEUMATOID ARTHRITIS
     Dates: start: 20050801
  3. RAMIPRIL [Concomitant]
     Dates: start: 20081201
  4. OMEPRAZOLE [Concomitant]
     Dates: start: 20080401
  5. REWODINA [Concomitant]
     Dates: start: 20070901
  6. LEFLUNOMIDE [Suspect]
     Indication: RHEUMATOID ARTHRITIS
     Dates: start: 20070901
  7. ERGOCALCIFEROL [Concomitant]
     Dates: start: 20100701

REACTIONS (5)
  - SKIN NECROSIS [None]
  - KLEBSIELLA INFECTION [None]
  - IMPAIRED HEALING [None]
  - LOWER LIMB FRACTURE [None]
  - FISTULA [None]
